FAERS Safety Report 8193257-5 (Version None)
Quarter: 2012Q1

REPORT INFORMATION
  Report Type: 
  Country: None (occurrence: None)
  Receive Date: 20120308
  Receipt Date: 20120229
  Transmission Date: 20120608
  Serious: Yes (Hospitalization)
  Sender: FDA-Public Use
  Company Number: ES-EISAI INC-E2090-02010-SPO-ES

PATIENT
  Age: 57 Year
  Sex: Female

DRUGS (3)
  1. ZONEGRAN [Suspect]
     Indication: EPILEPSY
     Dosage: 100 MG 1 IN 2 DAYS
     Route: 048
     Dates: start: 20050101, end: 20050101
  2. ZONEGRAN [Suspect]
     Dosage: 150 MG 1 IN 2 DAYS
     Route: 048
     Dates: start: 20050101
  3. LAMOTRIGINE [Suspect]
     Indication: EPILEPSY
     Dosage: 250 MG, 1 IN 2 DAYS
     Route: 048
     Dates: start: 19960101

REACTIONS (1)
  - BRUGADA SYNDROME [None]
